FAERS Safety Report 15712030 (Version 4)
Quarter: 2019Q2

REPORT INFORMATION
  Report Type: Spontaneous
  Country: US (occurrence: US)
  Receive Date: 20181212
  Receipt Date: 20190426
  Transmission Date: 20190711
  Serious: Yes (Other)
  Sender: FDA-Public Use
  Company Number: US-009507513-1812USA004373

PATIENT
  Age: 85 Year
  Sex: Female

DRUGS (6)
  1. KEYTRUDA [Suspect]
     Active Substance: PEMBROLIZUMAB
     Indication: MALIGNANT MELANOMA
     Dosage: 2 MILLIGRAM/KILOGRAM, Q3 WEEKS
  2. VAGIFEM [Concomitant]
     Active Substance: ESTRADIOL
  3. VITAMIN D (UNSPECIFIED) [Concomitant]
     Active Substance: VITAMIN D NOS
  4. ASCORBIC ACID. [Concomitant]
     Active Substance: ASCORBIC ACID
  5. RAMIPRIL. [Concomitant]
     Active Substance: RAMIPRIL
  6. MOMETASONE FUROATE. [Concomitant]
     Active Substance: MOMETASONE FUROATE

REACTIONS (4)
  - Autoimmune haemolytic anaemia [Not Recovered/Not Resolved]
  - Rash [Unknown]
  - Autoimmune hypothyroidism [Not Recovered/Not Resolved]
  - Immune-mediated adverse reaction [Unknown]
